FAERS Safety Report 5584535-4 (Version None)
Quarter: 2008Q1

REPORT INFORMATION
  Report Type: 
  Country: None (occurrence: None)
  Receive Date: 20080103
  Receipt Date: 20061009
  Transmission Date: 20080703
  Serious: Yes (Other)
  Sender: FDA-Public Use
  Company Number: 2006VX001751

PATIENT
  Age: 33 Year
  Sex: Female

DRUGS (2)
  1. MESTINON [Suspect]
     Dosage: 120 MG;TID; PO
     Route: 048
  2. COCAINE [Concomitant]

REACTIONS (3)
  - DERMATITIS BULLOUS [None]
  - ERYTHEMA [None]
  - RASH VESICULAR [None]
